FAERS Safety Report 5618663-1 (Version None)
Quarter: 2008Q1

REPORT INFORMATION
  Report Type: 
  Country: None (occurrence: None)
  Receive Date: 20080205
  Receipt Date: 20080205
  Transmission Date: 20080703
  Serious: No
  Sender: FDA-Public Use
  Company Number: None

PATIENT
  Age: 51 Year
  Sex: Female
  Weight: 81.6475 kg

DRUGS (1)
  1. NEXIUM [Suspect]
     Indication: GASTRIC ULCER
     Dosage: 40MG EVERY DAY PO
     Route: 048
     Dates: start: 20080105, end: 20080126

REACTIONS (2)
  - RASH [None]
  - RASH MACULAR [None]
